FAERS Safety Report 5819898-5 (Version None)
Quarter: 2008Q3

REPORT INFORMATION
  Report Type: 
  Country: None (occurrence: None)
  Receive Date: 20080717
  Receipt Date: 20080617
  Transmission Date: 20090109
  Serious: No
  Sender: FDA-Public Use
  Company Number: ADE#08-091

PATIENT
  Sex: Male

DRUGS (2)
  1. TICLOPIDINE HYDROCHLORIDE [Suspect]
  2. PLAVIX [Suspect]

REACTIONS (2)
  - RASH [None]
  - URTICARIA [None]
